FAERS Safety Report 6670304-0 (Version None)
Quarter: 2010Q2

REPORT INFORMATION
  Report Type: 
  Country: None (occurrence: None)
  Receive Date: 20100406
  Receipt Date: 20100329
  Transmission Date: 20101027
  Serious: Yes (Other)
  Sender: FDA-Public Use
  Company Number: US-BRISTOL-MYERS SQUIBB COMPANY-15041965

PATIENT
  Age: 52 Year
  Sex: Male
  Weight: 104 kg

DRUGS (22)
  1. METFORMIN HCL [Suspect]
     Indication: DIABETES MELLITUS
     Dosage: 1DF=1TAB
     Route: 048
     Dates: end: 20090101
  2. GLUCOPHAGE [Suspect]
     Dosage: 1DF=1TAB
     Route: 048
     Dates: start: 20090201
  3. LORATADINE [Suspect]
     Route: 048
     Dates: start: 20081101
  4. OXYCODONE HCL [Suspect]
     Dates: start: 20100201
  5. GLUCOPHAGE XR [Suspect]
     Dates: start: 20090101
  6. GLIPIZIDE [Suspect]
     Indication: DIABETES MELLITUS
     Dosage: FILM COATED TABS
     Route: 048
  7. FINASTERIDE [Suspect]
     Indication: OEDEMA
     Route: 048
     Dates: start: 20080801
  8. IPRATROPIUM BROMIDE [Suspect]
     Dosage: SPRAY
  9. ACTOS [Suspect]
     Indication: DIABETES MELLITUS
     Dosage: REGIMEN 2:15MG ORAL 1/1DAY(JAN09TO2009) 15MG 2/1DAY(APR09TO09 15MG 3/1DAY(2009)
     Route: 048
     Dates: start: 20090108
  10. SIMVASTATIN [Suspect]
     Indication: BLOOD CHOLESTEROL INCREASED
     Route: 048
  11. SIMVASTATIN [Suspect]
     Indication: ALANINE AMINOTRANSFERASE INCREASED
     Route: 048
  12. ALBUTEROL SULFATE AUTOHALER [Suspect]
     Indication: RESPIRATORY TRACT INFECTION VIRAL
     Route: 048
     Dates: start: 20070301
  13. ALBUTEROL SULFATE AUTOHALER [Suspect]
     Indication: RHINITIS
     Route: 048
     Dates: start: 20070301
  14. ALBUTEROL SULFATE AUTOHALER [Suspect]
     Indication: COUGH
     Route: 048
     Dates: start: 20070301
  15. ALLOPURINOL [Suspect]
     Indication: HEPATIC ENZYME INCREASED
     Route: 048
     Dates: start: 20040201
  16. COLCHICINE [Suspect]
     Indication: ALANINE AMINOTRANSFERASE INCREASED
     Dosage: 1-2TABS A DAY
     Route: 048
     Dates: start: 20020301
  17. NASAREL [Suspect]
     Indication: OEDEMA PERIPHERAL
     Dates: start: 20031201, end: 20061101
  18. OMEPRAZOLE [Suspect]
     Indication: OEDEMA PERIPHERAL
     Route: 048
     Dates: start: 20040701
  19. OMEPRAZOLE [Suspect]
     Indication: ALANINE AMINOTRANSFERASE INCREASED
     Route: 048
     Dates: start: 20040701
  20. PENTOXIFYLLINE [Suspect]
     Indication: OEDEMA
     Route: 048
     Dates: start: 20020501
  21. RANITIDINE [Suspect]
     Indication: MYALGIA
     Route: 048
     Dates: start: 20030901
  22. LASIX [Suspect]
     Indication: FLUID RETENTION
     Dates: start: 20090101

REACTIONS (6)
  - ALANINE AMINOTRANSFERASE INCREASED [None]
  - BLOOD GLUCOSE INCREASED [None]
  - GINGIVAL DISORDER [None]
  - MUSCLE SPASMS [None]
  - NASOPHARYNGITIS [None]
  - OEDEMA PERIPHERAL [None]
